FAERS Safety Report 8492894-8 (Version None)
Quarter: 2012Q3

REPORT INFORMATION
  Report Type: 
  Country: None (occurrence: None)
  Receive Date: 20120706
  Receipt Date: 20120629
  Transmission Date: 20120928
  Serious: Yes (Hospitalization)
  Sender: FDA-Public Use
  Company Number: US-GLAXOSMITHKLINE-A0841269A

PATIENT
  Sex: Female
  Weight: 78.2 kg

DRUGS (1)
  1. AVANDIA [Suspect]
     Indication: DIABETES MELLITUS
     Dosage: 4MG PER DAY
     Route: 048
     Dates: start: 20040101, end: 20080901

REACTIONS (4)
  - CARDIAC FAILURE [None]
  - HYPERTENSION [None]
  - PAIN [None]
  - MYOCARDIAL INFARCTION [None]
